FAERS Safety Report 23479671 (Version 1)
Quarter: 2024Q1

REPORT INFORMATION
  Report Type: Spontaneous
  Country: US (occurrence: US)
  Receive Date: 20240205
  Receipt Date: 20240205
  Transmission Date: 20240409
  Serious: Yes (Hospitalization, Other)
  Sender: FDA-Public Use
  Company Number: US-CADILA HEALTHCARE LIMITED-US-ZYDUS-102702

PATIENT

DRUGS (6)
  1. BUPROPION [Suspect]
     Active Substance: BUPROPION
     Indication: Product used for unknown indication
     Dosage: APPROXIMATELY 13.5 GRAM
     Route: 065
  2. CLONIDINE [Suspect]
     Active Substance: CLONIDINE
     Indication: Product used for unknown indication
     Dosage: APPROXIMATELY 6 MILLIGRAM
     Route: 065
  3. GABAPENTIN [Suspect]
     Active Substance: GABAPENTIN
     Indication: Product used for unknown indication
     Dosage: APPROXIMATELY 9 GRAM
     Route: 065
  4. LEVETIRACETAM [Suspect]
     Active Substance: LEVETIRACETAM
     Indication: Seizure
     Dosage: UNK
     Route: 042
  5. QUETIAPINE [Suspect]
     Active Substance: QUETIAPINE
     Indication: Product used for unknown indication
     Dosage: APPROXIMATELY 6 GRAM
     Route: 065
  6. FLUOXETINE [Suspect]
     Active Substance: FLUOXETINE HYDROCHLORIDE
     Indication: Product used for unknown indication
     Dosage: 1.2 GRAM
     Route: 065

REACTIONS (10)
  - Haemodynamic instability [Unknown]
  - Bundle branch block left [Unknown]
  - Electrocardiogram QT prolonged [Recovered/Resolved]
  - Systolic dysfunction [Recovered/Resolved]
  - Ventricular hypokinesia [Unknown]
  - Ejection fraction decreased [Recovering/Resolving]
  - Acidosis [Unknown]
  - Seizure [Unknown]
  - Drug ineffective [Unknown]
  - Intentional product misuse [Unknown]
